FAERS Safety Report 7669743-0 (Version None)
Quarter: 2011Q3

REPORT INFORMATION
  Report Type: 
  Country: None (occurrence: None)
  Receive Date: 20110803
  Receipt Date: 20110719
  Transmission Date: 20111222
  Serious: Yes (Other)
  Sender: FDA-Public Use
  Company Number: 2011MA009059

PATIENT
  Age: 37 Year
  Sex: Female

DRUGS (4)
  1. LIDOCAINE HCL [Suspect]
     Indication: PREOPERATIVE CARE
     Dosage: 2 ML; UNK, SC
     Route: 058
  2. LIDOCAINE HCL [Suspect]
     Indication: BREAST RECONSTRUCTION
     Dosage: 2 ML; UNK, SC
     Route: 058
  3. EPINEPHRINE [Suspect]
     Indication: BREAST RECONSTRUCTION
     Dosage: 1:100,000, SC
     Route: 058
  4. EPINEPHRINE [Suspect]
     Indication: PREOPERATIVE CARE
     Dosage: 1:100,000, SC
     Route: 058

REACTIONS (4)
  - SKIN NECROSIS [None]
  - POST PROCEDURAL COMPLICATION [None]
  - INJECTION SITE ISCHAEMIA [None]
  - SKIN EXFOLIATION [None]
